FAERS Safety Report 14331415 (Version 7)
Quarter: 2018Q4

REPORT INFORMATION
  Report Type: Spontaneous
  Country: CA (occurrence: CA)
  Receive Date: 20171228
  Receipt Date: 20181207
  Transmission Date: 20190204
  Serious: Yes (Other)
  Sender: FDA-Public Use
  Company Number: CA-CELLTRION INC.-2017CA005218

PATIENT

DRUGS (11)
  1. INFLIXIMAB PFIZER (UNKNOWN) [Suspect]
     Active Substance: INFLIXIMAB
     Dosage: 400 MG CYCLIC (EVERY 2, 6 WEEKS, THEN EVERY 8 WEEKS)
     Route: 042
     Dates: start: 20171219, end: 20171219
  2. INFLIXIMAB PFIZER (UNKNOWN) [Suspect]
     Active Substance: INFLIXIMAB
     Dosage: 400 MG, CYCLIC (EVERY 2,6 WEEKS, THEN EVERY 8 WEEKS)
     Route: 042
     Dates: start: 20181002
  3. METHOTREXATE SODIUM. [Suspect]
     Active Substance: METHOTREXATE SODIUM
     Indication: PAIN
     Dosage: UNK
     Route: 065
     Dates: start: 20170316
  4. INFLIXIMAB PFIZER (UNKNOWN) [Suspect]
     Active Substance: INFLIXIMAB
     Dosage: 400 MG, CYCLIC (EVERY 2,6 WEEKS, THEN EVERY 8 WEEKS)
     Route: 042
     Dates: start: 20171219
  5. PREDNISONE. [Concomitant]
     Active Substance: PREDNISONE
     Dosage: 40 MG (TAPER)
     Route: 065
     Dates: start: 20170301
  6. INFLIXIMAB PFIZER (UNKNOWN) [Suspect]
     Active Substance: INFLIXIMAB
     Dosage: 400 MG, CYCLIC (EVERY 2,6 WEEKS, THEN EVERY 8 WEEKS)
     Route: 042
     Dates: start: 20180608
  7. INFLIXIMAB PFIZER (UNKNOWN) [Suspect]
     Active Substance: INFLIXIMAB
     Dosage: 400 MG, CYCLIC (EVERY 2,6 WEEKS, THEN EVERY 8 WEEKS)
     Route: 042
     Dates: start: 20180731
  8. INFLIXIMAB PFIZER (UNKNOWN) [Suspect]
     Active Substance: INFLIXIMAB
     Indication: COLITIS ULCERATIVE
     Dosage: 400 MG, EVERY 0,2,6 WEEKS THEN EVERY 8 WEEKS FOR 12 MONTHS
     Route: 042
     Dates: start: 20170313
  9. INFLIXIMAB PFIZER (UNKNOWN) [Suspect]
     Active Substance: INFLIXIMAB
     Dosage: 400 MG, CYCLIC (EVERY 2, 6 WEEKS, THEN EVERY 8 WEEKS)
     Route: 042
     Dates: start: 20171023, end: 20171023
  10. INFLIXIMAB PFIZER (UNKNOWN) [Suspect]
     Active Substance: INFLIXIMAB
     Dosage: 400 MG, CYCLIC (EVERY 2,6 WEEKS, THEN EVERY 8 WEEKS)
     Route: 042
     Dates: start: 20181122
  11. INFLIXIMAB PFIZER (UNKNOWN) [Suspect]
     Active Substance: INFLIXIMAB
     Dosage: 400 MG, EVERY 0,2,6 WEEKS THEN EVERY 8 WEEKS FOR 12 MONTHS
     Route: 042
     Dates: start: 20170313

REACTIONS (8)
  - Product use issue [Unknown]
  - Blood pressure fluctuation [Unknown]
  - Heart rate irregular [Unknown]
  - Arthralgia [Not Recovered/Not Resolved]
  - Oedema peripheral [Not Recovered/Not Resolved]
  - Heart rate decreased [Unknown]
  - Tooth abscess [Unknown]
  - Arthritis [Not Recovered/Not Resolved]

NARRATIVE: CASE EVENT DATE: 2017
